FAERS Safety Report 8086088-8 (Version None)
Quarter: 2012Q1

REPORT INFORMATION
  Report Type: 
  Country: None (occurrence: None)
  Receive Date: 20120128
  Receipt Date: 20110414
  Transmission Date: 20120608
  Serious: No
  Sender: FDA-Public Use
  Company Number: US-ABBOTT-11P-163-0718988-00

PATIENT
  Age: 27 Year
  Sex: Female

DRUGS (3)
  1. HUMIRA [Suspect]
     Indication: PSORIATIC ARTHROPATHY
     Dates: start: 20110201
  2. NUVARING [Concomitant]
     Indication: CONTRACEPTION
  3. ALLEGRA [Concomitant]
     Indication: HYPERSENSITIVITY
     Route: 048

REACTIONS (1)
  - INJECTION SITE PAIN [None]
